FAERS Safety Report 16573451 (Version 3)
Quarter: 2019Q4

REPORT INFORMATION
  Report Type: Spontaneous
  Country: US (occurrence: US)
  Receive Date: 20190715
  Receipt Date: 20191030
  Transmission Date: 20200122
  Serious: No
  Sender: FDA-Public Use
  Company Number: US-ACTELION-A-NJ2019-192795

PATIENT
  Sex: Female
  Weight: 72.56 kg

DRUGS (1)
  1. OPSUMIT [Suspect]
     Active Substance: MACITENTAN
     Indication: PULMONARY ARTERIAL HYPERTENSION
     Dosage: 10 MG, QD
     Route: 048

REACTIONS (6)
  - Peripheral swelling [Unknown]
  - Eye disorder [Not Recovered/Not Resolved]
  - Joint swelling [Unknown]
  - Product dose omission [Unknown]
  - Macular degeneration [Not Recovered/Not Resolved]
  - Arthralgia [Unknown]

NARRATIVE: CASE EVENT DATE: 2019
